APPROVED DRUG PRODUCT: VENLAFAXINE HYDROCHLORIDE
Active Ingredient: VENLAFAXINE HYDROCHLORIDE
Strength: EQ 150MG BASE
Dosage Form/Route: TABLET, EXTENDED RELEASE;ORAL
Application: A214691 | Product #003 | TE Code: AB
Applicant: AJANTA PHARMA LTD
Approved: Apr 12, 2023 | RLD: No | RS: No | Type: RX